FAERS Safety Report 7930987-1 (Version None)
Quarter: 2011Q4

REPORT INFORMATION
  Report Type: 
  Country: None (occurrence: None)
  Receive Date: 20111121
  Receipt Date: 20111117
  Transmission Date: 20120403
  Serious: Yes (Hospitalization)
  Sender: FDA-Public Use
  Company Number: US-GILEAD-2011-0045256

PATIENT
  Sex: Female

DRUGS (5)
  1. ADCIRCA [Concomitant]
  2. LETAIRIS [Suspect]
     Indication: SCLERODERMA
  3. FLOLAN [Concomitant]
  4. REVATIO [Concomitant]
  5. LETAIRIS [Suspect]
     Indication: PULMONARY HYPERTENSION
     Dosage: 10 MG, UNK
     Route: 048
     Dates: start: 20070927

REACTIONS (1)
  - SYSTEMIC LUPUS ERYTHEMATOSUS [None]
